FAERS Safety Report 24271730 (Version 2)
Quarter: 2024Q3

REPORT INFORMATION
  Report Type: Report from Study
  Country: CA (occurrence: CA)
  Receive Date: 20240902
  Receipt Date: 20240910
  Transmission Date: 20241017
  Serious: Yes (Other)
  Sender: TAKEDA
  Company Number: CA-TAKEDA-CA201825190

PATIENT
  Sex: Female
  Weight: 62 kg

DRUGS (8)
  1. HUMAN IMMUNOGLOBULIN G [Suspect]
     Active Substance: HUMAN IMMUNOGLOBULIN G
     Indication: Primary immunodeficiency syndrome
     Dosage: 3 GRAM, 1/WEEK
     Route: 058
     Dates: start: 20180620
  2. HUMAN IMMUNOGLOBULIN G [Suspect]
     Active Substance: HUMAN IMMUNOGLOBULIN G
     Dosage: 3 GRAM, 1/WEEK
     Route: 065
  3. HUMAN IMMUNOGLOBULIN G [Suspect]
     Active Substance: HUMAN IMMUNOGLOBULIN G
     Dosage: 3 GRAM, 1/WEEK
     Route: 050
  4. HUMAN IMMUNOGLOBULIN G [Suspect]
     Active Substance: HUMAN IMMUNOGLOBULIN G
     Dosage: 3 DOSAGE FORM, 1/WEEK
     Route: 050
  5. HUMAN IMMUNOGLOBULIN G [Suspect]
     Active Substance: HUMAN IMMUNOGLOBULIN G
     Dosage: 3 GRAM, 1/WEEK
     Route: 050
  6. HYQVIA [Suspect]
     Active Substance: HUMAN IMMUNOGLOBULIN G\HYALURONIDASE (HUMAN RECOMBINANT)
     Indication: Secondary immunodeficiency
     Dosage: 12.5 GRAM, Q4WEEKS
     Route: 050
  7. IBRUTINIB [Concomitant]
     Active Substance: IBRUTINIB
     Dosage: UNK
     Route: 065
  8. MESALAMINE [Concomitant]
     Active Substance: MESALAMINE
     Dosage: UNK
     Route: 065

REACTIONS (16)
  - Surgery [Recovering/Resolving]
  - Injection site bruising [Unknown]
  - Administration site discomfort [Unknown]
  - Needle issue [Unknown]
  - Device infusion issue [Not Recovered/Not Resolved]
  - Osteoporosis [Unknown]
  - Product selection error [Unknown]
  - Incorrect dose administered [Unknown]
  - Wrong technique in product usage process [Unknown]
  - Incorrect product administration duration [Unknown]
  - Wrong technique in device usage process [Unknown]
  - Post procedural infection [Not Recovered/Not Resolved]
  - Headache [Unknown]
  - Pyrexia [Unknown]
  - Nausea [Unknown]
  - Infusion site swelling [Unknown]

NARRATIVE: CASE EVENT DATE: 20220101
